FAERS Safety Report 10186886 (Version 2)
Quarter: 2014Q3

REPORT INFORMATION
  Report Type: Spontaneous
  Country: US (occurrence: US)
  Receive Date: 20140522
  Receipt Date: 20140915
  Transmission Date: 20150326
  Serious: Yes (Hospitalization)
  Sender: FDA-Public Use
  Company Number: 2014SP002811

PATIENT
  Age: 64 Year
  Sex: Male
  Weight: 115.6 kg

DRUGS (29)
  1. DEXRAZOXANE. [Concomitant]
     Active Substance: DEXRAZOXANE
     Dates: start: 20140319, end: 20140410
  2. RETINOL [Concomitant]
     Active Substance: RETINOL
     Dates: start: 201310
  3. AMOXICILLIN AND CLAVULANATE POTASSIUM [Concomitant]
     Active Substance: AMOXICILLIN\CLAVULANATE POTASSIUM
     Dates: start: 20140310, end: 20140410
  4. DOXORUBICIN [Suspect]
     Active Substance: DOXORUBICIN
     Indication: SARCOMA METASTATIC
     Route: 040
     Dates: start: 20131226, end: 20140410
  5. OXYCODONE HYDROCHLORIDE. [Concomitant]
     Active Substance: OXYCODONE HYDROCHLORIDE
     Dates: start: 20131226
  6. SALBUTAMOL SULFATE [Concomitant]
     Active Substance: ALBUTEROL SULFATE
     Dates: start: 2011
  7. ZINC [Concomitant]
     Active Substance: ZINC\ZINC CHLORIDE
     Dates: start: 201310
  8. RABEPRAZOLE SODIUM. [Concomitant]
     Active Substance: RABEPRAZOLE SODIUM
     Dates: start: 2007
  9. PROCHLORPERAZINE MALEATE. [Concomitant]
     Active Substance: PROCHLORPERAZINE MALEATE
     Dates: start: 20131226
  10. DOXORUBICIN [Suspect]
     Active Substance: DOXORUBICIN
     Indication: SARCOMA METASTATIC
     Route: 040
     Dates: start: 20140410, end: 20140410
  11. NEBIVOLOL HYDROCHLORIDE [Concomitant]
     Active Substance: NEBIVOLOL HYDROCHLORIDE
     Dates: start: 2009
  12. MULTIVITAMINS [Concomitant]
     Active Substance: VITAMINS
     Dates: start: 201306
  13. ASCORBIC ACID. [Concomitant]
     Active Substance: ASCORBIC ACID
     Dates: start: 201310
  14. METOPROLOL TARTRATE. [Concomitant]
     Active Substance: METOPROLOL TARTRATE
     Dates: start: 20140423
  15. VALTREX [Concomitant]
     Active Substance: VALACYCLOVIR HYDROCHLORIDE
     Dates: start: 20140404
  16. GABAPENTIN. [Concomitant]
     Active Substance: GABAPENTIN
     Dates: start: 20140221
  17. SIMETHICONE [Concomitant]
     Active Substance: DIMETHICONE\SILICON DIOXIDE\SIMETHICONE
     Dates: start: 1986
  18. ALL OTHER THERAPEUTIC PRODUCTS [Concomitant]
     Active Substance: UNSPECIFIED INGREDIENT
     Dates: start: 2012
  19. POTASSIUM CHLORIDE. [Concomitant]
     Active Substance: POTASSIUM CHLORIDE
     Dates: start: 2009
  20. TRIAMTERENE AND HYDROCHLOROTHIAZIDE [Concomitant]
     Active Substance: HYDROCHLOROTHIAZIDE\TRIAMTERENE
     Dates: start: 201202
  21. ONDANSETRON HYDROCHLORIDE. [Concomitant]
     Active Substance: ONDANSETRON HYDROCHLORIDE
     Dates: start: 20131226
  22. OXYCODONE HYDROCHLORIDE. [Concomitant]
     Active Substance: OXYCODONE HYDROCHLORIDE
     Dates: start: 20131226
  23. LIDOCAINE. [Concomitant]
     Active Substance: LIDOCAINE
     Dates: start: 20140124
  24. MAGNESIUM OXIDE. [Concomitant]
     Active Substance: MAGNESIUM OXIDE
     Dates: start: 20131013
  25. CIPROFLOXACIN. [Concomitant]
     Active Substance: CIPROFLOXACIN
     Dates: start: 20140324, end: 20140410
  26. TRIAMTERENE. [Concomitant]
     Active Substance: TRIAMTERENE
     Dates: start: 20140307, end: 20140410
  27. DOCUSATE SODIUM. [Concomitant]
     Active Substance: DOCUSATE SODIUM
     Dates: start: 201209
  28. DILTIAZEM HCL EXTE-REL [Concomitant]
     Dates: start: 20140404, end: 20140423
  29. PEGFILGRASTIM [Concomitant]
     Active Substance: PEGFILGRASTIM

REACTIONS (7)
  - Vision blurred [Not Recovered/Not Resolved]
  - Embolism [Recovered/Resolved]
  - Dizziness [Not Recovered/Not Resolved]
  - Decreased appetite [Not Recovered/Not Resolved]
  - Muscle tightness [Not Recovered/Not Resolved]
  - Ventricular tachycardia [Recovered/Resolved]
  - Orthostatic hypotension [Not Recovered/Not Resolved]

NARRATIVE: CASE EVENT DATE: 20140424
